FAERS Safety Report 8360555-1 (Version None)
Quarter: 2012Q2

REPORT INFORMATION
  Report Type: 
  Country: None (occurrence: None)
  Receive Date: 20120515
  Receipt Date: 20120510
  Transmission Date: 20120825
  Serious: Yes (Death, Hospitalization, Other)
  Sender: FDA-Public Use
  Company Number: PHHY2012BR030909

PATIENT
  Sex: Male

DRUGS (4)
  1. BUDESONIDE [Suspect]
     Indication: CHRONIC OBSTRUCTIVE PULMONARY DISEASE
     Dates: start: 20110901
  2. FLUTICASONE PROPIONATE/SALMETEROL [Concomitant]
     Indication: DYSPNOEA
  3. ONBREZ [Suspect]
     Indication: CHRONIC OBSTRUCTIVE PULMONARY DISEASE
     Dates: start: 20110901
  4. SPIRIVA [Concomitant]
     Indication: DYSPNOEA

REACTIONS (3)
  - RESPIRATORY ARREST [None]
  - DYSPNOEA [None]
  - RENAL IMPAIRMENT [None]
